FAERS Safety Report 9743139 (Version 1)
Quarter: 2013Q4

REPORT INFORMATION
  Report Type: Spontaneous
  Country: US (occurrence: US)
  Receive Date: 20131210
  Receipt Date: 20131210
  Transmission Date: 20140711
  Serious: No
  Sender: FDA-Public Use
  Company Number: US-GILEAD-2009-0024308

PATIENT
  Sex: Male
  Weight: 85.5 kg

DRUGS (9)
  1. LETAIRIS [Suspect]
     Indication: PULMONARY ARTERIAL HYPERTENSION
     Route: 048
  2. LETAIRIS [Suspect]
     Route: 048
  3. LETAIRIS [Suspect]
     Route: 048
     Dates: start: 20090803
  4. COUMADIN [Suspect]
  5. CRESTOR [Concomitant]
  6. LASIX [Concomitant]
  7. COLCHICINE [Concomitant]
  8. FLOMAX [Concomitant]
  9. K-DUR [Concomitant]

REACTIONS (2)
  - Liver function test abnormal [Not Recovered/Not Resolved]
  - Epistaxis [Unknown]
